FAERS Safety Report 6172786-X (Version None)
Quarter: 2009Q2

REPORT INFORMATION
  Report Type: 
  Country: None (occurrence: None)
  Receive Date: 20090430
  Receipt Date: 20090427
  Transmission Date: 20091009
  Serious: Yes (Death)
  Sender: FDA-Public Use
  Company Number: JP-BRISTOL-MYERS SQUIBB COMPANY-14567200

PATIENT
  Age: 69 Year
  Sex: Female

DRUGS (7)
  1. TAXOL [Suspect]
     Indication: OVARIAN CANCER
     Dosage: ON 18FEB09-270MG;ON 18MAR09 INITIATED 265 MG AND 1-2 MINTS LATER, EVENT APPEARED
     Route: 041
     Dates: start: 20090218, end: 20090218
  2. PARAPLATIN [Suspect]
     Indication: OVARIAN CANCER
     Dosage: 1 DOSAGE FORM = AUC5
     Route: 041
     Dates: start: 20090218, end: 20090218
  3. DECADRON [Concomitant]
     Indication: PREMEDICATION
     Dosage: GIVEN ON 18MAR-18MAR2009.
     Route: 042
     Dates: start: 20090218, end: 20090318
  4. DIPHENHYDRAMINE HCL [Concomitant]
     Indication: PREMEDICATION
     Dosage: GIVEN ON 18MAR2009 ALSO.
     Route: 048
     Dates: start: 20090318, end: 20090318
  5. ZANTAC [Concomitant]
     Indication: PREMEDICATION
     Dosage: GIVEN ON 18MAR2009.
     Route: 042
     Dates: start: 20090218, end: 20090318
  6. NAVOBAN [Concomitant]
     Route: 048
     Dates: start: 20090318, end: 20090318
  7. GRANISETRON HCL [Concomitant]
     Indication: PREMEDICATION
     Route: 041
     Dates: start: 20090218, end: 20090318

REACTIONS (2)
  - ANAPHYLACTIC SHOCK [None]
  - RASH [None]
